FAERS Safety Report 8675043 (Version 2)
Quarter: 2014Q1

REPORT INFORMATION
  Report Type: Spontaneous
  Country: US (occurrence: US)
  Receive Date: 20120720
  Receipt Date: 20140326
  Transmission Date: 20141002
  Serious: Yes (Other)
  Sender: FDA-Public Use
  Company Number: US-ASTRAZENECA-2012SE25293

PATIENT
  Age: 35 Year
  Sex: Female
  Weight: 135.2 kg

DRUGS (14)
  1. NEXIUM [Suspect]
     Indication: DYSPEPSIA
     Route: 048
     Dates: start: 2011, end: 20140317
  2. NEXIUM [Suspect]
     Indication: GASTROOESOPHAGEAL REFLUX DISEASE
     Route: 048
     Dates: start: 2011, end: 20140317
  3. LEXAPRO [Concomitant]
     Route: 048
     Dates: start: 20110906
  4. MOTRIN [Concomitant]
     Indication: PAIN
     Route: 048
     Dates: start: 20111129
  5. MOTRIN [Concomitant]
     Indication: PAIN
  6. FLEXERIL [Concomitant]
  7. FLEXERIL [Concomitant]
  8. ZITHROMAX Z-PACK [Concomitant]
     Dosage: AS DIRECTED
  9. LOTRISONE [Concomitant]
     Dosage: 0.05-1 %, APPLY TO AREA, BID
  10. AMOXICILLIN [Concomitant]
  11. POLY HIST FORTE [Concomitant]
  12. SINGULAIR [Concomitant]
  13. ASMANEX TWISTHALER [Concomitant]
     Dosage: 200, 1 PUFF QDAY
  14. PHENERGAN/CODEINE [Concomitant]
     Indication: COUGH
     Dosage: 10-6.25 MG, 1 TSP TID PRN

REACTIONS (7)
  - Exposure during pregnancy [Not Recovered/Not Resolved]
  - Bronchitis chronic [Unknown]
  - Chronic obstructive pulmonary disease [Unknown]
  - Oropharyngeal pain [Unknown]
  - Dyspepsia [Unknown]
  - Drug dose omission [Unknown]
  - Off label use [Unknown]
